FAERS Safety Report 5578308-6 (Version None)
Quarter: 2007Q4

REPORT INFORMATION
  Report Type: 
  Country: None (occurrence: None)
  Receive Date: 20071130
  Receipt Date: 20070628
  Transmission Date: 20080405
  Serious: No
  Sender: FDA-Public Use
  Company Number: US200707000957

PATIENT
  Sex: Male

DRUGS (2)
  1. BYETTA [Suspect]
     Dosage: UNK,UNK, SUBCUTANEOUS
     Route: 058
  2. EXENATIDE UNK STRENGTH PEN, DISPOSABLE DEVICE (EXENATIDE PEN (UNKNOWN [Concomitant]

REACTIONS (1)
  - ADVERSE EVENT [None]
